FAERS Safety Report 5623464-4 (Version None)
Quarter: 2008Q1

REPORT INFORMATION
  Report Type: 
  Country: None (occurrence: None)
  Receive Date: 20080212
  Receipt Date: 20080130
  Transmission Date: 20080703
  Serious: Yes (Other)
  Sender: FDA-Public Use
  Company Number: US-ELI_LILLY_AND_COMPANY-US200801006599

PATIENT
  Age: 14 Year
  Sex: Female
  Weight: 58.05 kg

DRUGS (5)
  1. STRATTERA [Suspect]
     Indication: TOURETTE'S DISORDER
     Dosage: 60 MG, EACH MORNING
  2. STRATTERA [Suspect]
     Dosage: 40 MG, EACH EVENING
  3. STRATTERA [Suspect]
     Dosage: 100 MG, EACH MORNING
  4. OMEGA 3 [Concomitant]
  5. IRON [Concomitant]

REACTIONS (3)
  - EPISTAXIS [None]
  - INSOMNIA [None]
  - MENORRHAGIA [None]
